FAERS Safety Report 7252718 (Version 4)
Quarter: 2012Q4

REPORT INFORMATION
  Report Type: Report from Study
  Country: FR (occurrence: FR)
  Receive Date: 20100122
  Receipt Date: 20121016
  Transmission Date: 20130627
  Serious: Yes (Hospitalization, Other)
  Sender: FDA-Public Use
  Company Number: FR-BRISTOL-MYERS SQUIBB COMPANY-14940712

PATIENT
  Age: 50 Year
  Sex: Female

DRUGS (9)
  1. ORENCIA FOR INJ 250 MG/VIAL [Suspect]
     Indication: RHEUMATOID ARTHRITIS
     Dosage: recent inf-11Jan10
No of inf: 20
     Route: 042
     Dates: start: 20080522
  2. DAFALGAN [Suspect]
  3. METHOTREXATE [Suspect]
     Indication: RHEUMATOID ARTHRITIS
     Dosage: last dose-10Jan10
     Route: 048
     Dates: start: 2001, end: 20100110
  4. CORTANCYL [Suspect]
     Route: 048
  5. LAMALINE [Suspect]
  6. MOBIC [Suspect]
  7. MOPRAL [Suspect]
  8. MYOLASTAN [Suspect]
  9. SPECIAFOLDINE [Concomitant]

REACTIONS (3)
  - Hepatocellular injury [Unknown]
  - Hepatitis E [Unknown]
  - Infection [Unknown]
